FAERS Safety Report 7412928-9 (Version None)
Quarter: 2011Q2

REPORT INFORMATION
  Report Type: 
  Country: None (occurrence: None)
  Receive Date: 20110408
  Receipt Date: 20110408
  Transmission Date: 20111010
  Serious: Yes (Other)
  Sender: FDA-Public Use
  Company Number: None

PATIENT
  Age: 33 Year
  Sex: Female
  Weight: 114.3065 kg

DRUGS (2)
  1. GEODON [Suspect]
     Indication: SCHIZOPHRENIA
     Dosage: 80MG ONCEATNIGHT
     Dates: start: 20080520, end: 20110401
  2. DETROL LA [Suspect]
     Indication: CYSTITIS
     Dosage: 4MG ONCEATNIGHT INTRA-UTERINE
     Route: 015
     Dates: start: 20101221, end: 20110407

REACTIONS (2)
  - SKIN ODOUR ABNORMAL [None]
  - BACK PAIN [None]
